FAERS Safety Report 8553146-0 (Version None)
Quarter: 2012Q3

REPORT INFORMATION
  Report Type: 
  Country: None (occurrence: None)
  Receive Date: 20120731
  Receipt Date: 20120718
  Transmission Date: 20120928
  Serious: Yes (Hospitalization)
  Sender: FDA-Public Use
  Company Number: FR-JNJFOC-20120713985

PATIENT
  Age: 54 Year
  Sex: Male

DRUGS (2)
  1. DICLOFENAC SODIUM [Suspect]
     Indication: SCIATICA
     Route: 065
     Dates: start: 20120601, end: 20120629
  2. ACETAMINOPHEN AND TRAMADOL HCL [Suspect]
     Indication: SCIATICA
     Route: 048
     Dates: start: 20120601, end: 20120629

REACTIONS (2)
  - RECTAL HAEMORRHAGE [None]
  - HYPOTENSION [None]
